FAERS Safety Report 8112567-0 (Version None)
Quarter: 2012Q1

REPORT INFORMATION
  Report Type: 
  Country: None (occurrence: None)
  Receive Date: 20120203
  Receipt Date: 20120127
  Transmission Date: 20120608
  Serious: Yes (Hospitalization)
  Sender: FDA-Public Use
  Company Number: CN-CTI_01441_2012

PATIENT
  Sex: Female

DRUGS (4)
  1. CEFACLOR [Suspect]
     Indication: TONSILLITIS
     Route: 048
  2. CEFDITOREN PIVOXIL SUSPENSION [Suspect]
     Indication: TONSILLITIS
     Dosage: DAILY DOSE 100MG TID (CEFDITOREN)
     Route: 048
     Dates: start: 20120117
  3. IBUPROFEN [Concomitant]
     Indication: ANTIPYRESIS
     Dosage: DF
     Route: 048
  4. VITAMIN C POWDER-NEEDLE [Concomitant]
     Route: 041
     Dates: start: 20120119, end: 20120119

REACTIONS (3)
  - OROPHARYNGEAL PAIN [None]
  - HYPERAEMIA [None]
  - BRONCHOPNEUMONIA [None]
